FAERS Safety Report 24452275 (Version 1)
Quarter: 2024Q4

REPORT INFORMATION
  Report Type: Spontaneous
  Country: US (occurrence: US)
  Receive Date: 20241017
  Receipt Date: 20241017
  Transmission Date: 20250115
  Serious: No
  Sender: SUNOVION
  Company Number: US-SMPA-202402-URV-000161AA

PATIENT
  Age: 71 Year
  Sex: Female

DRUGS (4)
  1. GEMTESA [Suspect]
     Active Substance: VIBEGRON
     Indication: Hypertonic bladder
     Dosage: 75 MG, QD
     Route: 048
  2. GEMTESA [Suspect]
     Active Substance: VIBEGRON
     Dosage: 75 MG, QD
     Route: 048
  3. TROSPIUM [Concomitant]
     Active Substance: TROSPIUM
     Indication: Product used for unknown indication
     Dosage: UNK
  4. TROSPIUM [Concomitant]
     Active Substance: TROSPIUM
     Dosage: UNK

REACTIONS (1)
  - Oedema peripheral [Recovered/Resolved]
